FAERS Safety Report 5197216-6 (Version None)
Quarter: 2006Q4

REPORT INFORMATION
  Report Type: 
  Country: None (occurrence: None)
  Receive Date: 20061227
  Receipt Date: 20061213
  Transmission Date: 20070319
  Serious: Yes (Other)
  Sender: FDA-Public Use
  Company Number: 2006153643

PATIENT
  Age: 72 Year
  Sex: Male

DRUGS (6)
  1. ALPRAZOLAM [Suspect]
     Indication: INSOMNIA
     Dosage: 1 MG (1 MG, 1 IN 1 D), ORAL
     Route: 048
     Dates: start: 20020101
  2. TICLID [Concomitant]
  3. TENORETIC 100 [Concomitant]
  4. COZAAR [Concomitant]
  5. ARCALION (BISBUTIAMINE) [Concomitant]
  6. LORAX (LORACARBEF) [Concomitant]

REACTIONS (2)
  - DRUG INEFFECTIVE [None]
  - PROSTATIC DISORDER [None]
